FAERS Safety Report 7243809-1 (Version None)
Quarter: 2011Q1

REPORT INFORMATION
  Report Type: 
  Country: None (occurrence: None)
  Receive Date: 20110125
  Receipt Date: 20110112
  Transmission Date: 20110831
  Serious: Yes (Hospitalization)
  Sender: FDA-Public Use
  Company Number: PHHY2011FR03122

PATIENT
  Sex: Female

DRUGS (2)
  1. METHYLPREDNISOLONE [Concomitant]
     Dosage: UNK
  2. PACLITAXEL [Suspect]
     Indication: BREAST CANCER
     Dosage: 120 MG, QD
     Route: 041
     Dates: start: 20101209, end: 20101209

REACTIONS (3)
  - TREMOR [None]
  - BLOOD PRESSURE SYSTOLIC INCREASED [None]
  - CHILLS [None]
